FAERS Safety Report 12305820 (Version 1)
Quarter: 2016Q2

REPORT INFORMATION
  Report Type: Spontaneous
  Country: ES (occurrence: ES)
  Receive Date: 20160426
  Receipt Date: 20160426
  Transmission Date: 20160815
  Serious: Yes (Other)
  Sender: FDA-Public Use
  Company Number: ES-SA-2016SA080110

PATIENT
  Sex: Female

DRUGS (1)
  1. STILNOX [Suspect]
     Active Substance: ZOLPIDEM TARTRATE
     Route: 065

REACTIONS (5)
  - Cardiovascular disorder [Unknown]
  - Cardiac disorder [Unknown]
  - Gallbladder polyp [Unknown]
  - Myocardial ischaemia [Unknown]
  - Chronic hepatitis [Unknown]
